FAERS Safety Report 9111067 (Version 1)
Quarter: 2013Q1

REPORT INFORMATION
  Report Type: Spontaneous
  Country: US (occurrence: US)
  Receive Date: 20130219
  Receipt Date: 20130219
  Transmission Date: 20140127
  Serious: No
  Sender: FDA-Public Use
  Company Number: US-BRISTOL-MYERS SQUIBB COMPANY-16863326

PATIENT
  Age: 64 Year
  Sex: Female

DRUGS (2)
  1. ORENCIA [Suspect]
     Dosage: 4 VIALS?STARTED ABOUT LATE APR2012 OR EARLY MAY12?LAST INFUSION 13AUG2012
     Route: 042
  2. PREDNISONE [Concomitant]

REACTIONS (1)
  - Arthralgia [Not Recovered/Not Resolved]
